FAERS Safety Report 16898823 (Version 3)
Quarter: 2019Q4

REPORT INFORMATION
  Report Type: Spontaneous
  Country: GR (occurrence: GR)
  Receive Date: 20191009
  Receipt Date: 20191226
  Transmission Date: 20200122
  Serious: Yes (Hospitalization, Other)
  Sender: FDA-Public Use
  Company Number: GR-PFIZER INC-2019425444

PATIENT
  Age: 65 Year
  Sex: Female

DRUGS (1)
  1. FILGRASTIM [Suspect]
     Active Substance: FILGRASTIM
     Indication: NEUTROPENIA
     Dosage: 48 IU, 1X/DAY
     Route: 058

REACTIONS (5)
  - Lower respiratory tract infection bacterial [Recovered/Resolved]
  - Escherichia infection [Recovered/Resolved]
  - Skin bacterial infection [Recovered/Resolved]
  - Aeromonas infection [Recovered/Resolved]
  - Febrile neutropenia [Recovered/Resolved]
